FAERS Safety Report 5288301-9 (Version None)
Quarter: 2007Q1

REPORT INFORMATION
  Report Type: 
  Country: None (occurrence: None)
  Receive Date: 20070330
  Receipt Date: 20070322
  Transmission Date: 20070707
  Serious: Yes (Other)
  Sender: FDA-Public Use
  Company Number: 6031347F

PATIENT
  Sex: Female

DRUGS (5)
  1. NIASPAN [Suspect]
     Dates: start: 20061101, end: 20061101
  2. AMLODIPINE [Concomitant]
  3. ASPIRIN [Concomitant]
  4. OMACOR [Concomitant]
  5. PROTELOS [Concomitant]

REACTIONS (2)
  - ANGINA PECTORIS [None]
  - MYOCARDIAL INFARCTION [None]
